FAERS Safety Report 19003404 (Version 1)
Quarter: 2021Q1

REPORT INFORMATION
  Report Type: Spontaneous
  Country: NL (occurrence: NL)
  Receive Date: 20210312
  Receipt Date: 20210312
  Transmission Date: 20210420
  Serious: Yes (Hospitalization)
  Sender: FDA-Public Use
  Company Number: NL-TEVA-2021-NL-1888100

PATIENT
  Age: 64 Year
  Sex: Male
  Weight: 101.5 kg

DRUGS (9)
  1. METHOTREXAAT TABLET 10MG / BRAND NAME NOT SPECIFIED [Suspect]
     Active Substance: METHOTREXATE
     Indication: RHEUMATOID ARTHRITIS
     Dosage: 1 X PER WEEK 1 PIECE, 10 MG
     Dates: start: 201005, end: 20201231
  2. HYDROXYCHLOROQUINE TABLET OMHULD 200MG / PLAQUENIL TABLET OMHULD 200MG [Concomitant]
     Dosage: 200 MG (MILLIGRAM); THERAPY START DATE; THERAPY END DATE : ASKED BUT UNKNOWN
  3. FOLIUMZUUR / BRAND NAME NOT SPECIFIED [Concomitant]
     Dosage: TABLET 5 MG 1 X DAILY 0.5 TABLET. NOT ON WEDNESDAYS
  4. PARACETAMOL / BRAND NAME NOT SPECIFIED [Concomitant]
     Dosage: 1000 MILLIGRAM DAILY; 1 ST AS NEEDED; THERAPY START DATE; THERAPY END DATE : ASKED BUT UNKNOWN
  5. AMLODIPINE [Concomitant]
     Active Substance: AMLODIPINE BESYLATE
     Dosage: 10 MG (MILLIGRAM); THERAPY START DATE; THERAPY END DATE : ASKED BUT UNKNOWN
  6. PAROXETINE TABLET 10MG / BRAND NAME NOT SPECIFIED [Concomitant]
     Dosage: 10 MG (MILLIGRAM); THERAPY START DATE; THERAPY END DATE : ASKED BUT UNKNOWN
  7. ATORVASTATINE TABLET 20MG / BRAND NAME NOT SPECIFIED [Concomitant]
     Active Substance: ATORVASTATIN
     Dosage: 20 MG (MILLIGRAM); THERAPY START DATE; THERAPY END DATE : ASKED BUT UNKNOWN
  8. TRAMADOL HYDROCHLORIDE / TRAMADOLI HYDROCHLORIDUM [Concomitant]
     Dosage: MODIFIED?RELEASE CAPSULE; 100 MG (MILLIGRAMS) AS NEEDED; THERAPY START DATE; THERAPY END DATE : ASKU
  9. ADALIMUMAB INJECTIE / BRAND NAME NOT SPECIFIED [Concomitant]
     Dosage: INJVLST PEN 40 MG = 0.8 ML (50 ML / ML) ONCE EVERY 14 DAYS; THERAPY START DATE; THERAPY END DATE : A

REACTIONS (1)
  - Pneumonitis [Not Recovered/Not Resolved]

NARRATIVE: CASE EVENT DATE: 20210131
